FAERS Safety Report 24969883 (Version 1)
Quarter: 2025Q1

REPORT INFORMATION
  Report Type: Report from Study
  Country: FR (occurrence: FR)
  Receive Date: 20250214
  Receipt Date: 20250214
  Transmission Date: 20250408
  Serious: Yes (Life-Threatening)
  Sender: PFIZER
  Company Number: FR-PFIZER INC-PV202500015004

PATIENT
  Weight: 9.2 kg

DRUGS (21)
  1. CYTARABINE [Suspect]
     Active Substance: CYTARABINE
     Indication: Acute myeloid leukaemia
     Dosage: 620 MG, 1X/DAY (INTRAVENOUS INFUSION)
     Route: 042
     Dates: start: 20211207, end: 20211211
  2. IDARUBICIN HYDROCHLORIDE [Suspect]
     Active Substance: IDARUBICIN HYDROCHLORIDE
     Indication: Acute myeloid leukaemia
     Dosage: 2.5 MG, 1X/DAY (INTRAVENOUS INFUSION)
     Route: 042
     Dates: start: 20211207, end: 20211211
  3. FLUDARABINE [Suspect]
     Active Substance: FLUDARABINE PHOSPHATE
     Dosage: 9.2 MG, 1X/DAY (INFUSION)
     Route: 042
     Dates: start: 20211207, end: 20211211
  4. MEROPENEM [Concomitant]
     Active Substance: MEROPENEM
     Indication: Febrile bone marrow aplasia
     Dosage: 18 MG, 1X/DAY
     Dates: start: 20211220
  5. AMIKACIN [Concomitant]
     Active Substance: AMIKACIN
     Indication: Febrile bone marrow aplasia
     Dosage: 18 MG, 1X/DAY
     Dates: start: 20211222, end: 20211224
  6. AMIKACIN [Concomitant]
     Active Substance: AMIKACIN
     Dosage: 27 MG, 1X/DAY
     Dates: start: 20211225, end: 20211227
  7. ACETAMINOPHEN [Concomitant]
     Active Substance: ACETAMINOPHEN
     Indication: Pain
     Dosage: 140 MG, DAILY
     Dates: start: 20211216
  8. ACETAMINOPHEN [Concomitant]
     Active Substance: ACETAMINOPHEN
     Indication: Pyrexia
  9. KETOPROFEN [Concomitant]
     Active Substance: KETOPROFEN
     Indication: Pain
     Dosage: 9 MG, 3X/DAY
     Dates: start: 20211225
  10. KETOPROFEN [Concomitant]
     Active Substance: KETOPROFEN
     Indication: Pyrexia
  11. CHLORPROMAZINE [Concomitant]
     Active Substance: CHLORPROMAZINE
     Indication: Nausea
     Dosage: 2 MG, 1X/DAY
     Dates: start: 20211207
  12. CHLORPROMAZINE [Concomitant]
     Active Substance: CHLORPROMAZINE
     Indication: Vomiting
  13. ONDANSETRON [Concomitant]
     Active Substance: ONDANSETRON
     Indication: Nausea
     Dosage: 2 MG, 3X/DAY
     Dates: start: 20211215
  14. ONDANSETRON [Concomitant]
     Active Substance: ONDANSETRON
     Indication: Vomiting
  15. PIPERACILLIN SODIUM\TAZOBACTAM SODIUM [Concomitant]
     Active Substance: PIPERACILLIN SODIUM\TAZOBACTAM SODIUM
     Indication: Febrile bone marrow aplasia
     Dosage: 1 G, DAILY
     Dates: start: 20211216, end: 20211220
  16. AMBISOME [Concomitant]
     Active Substance: AMPHOTERICIN B
     Indication: Febrile bone marrow aplasia
     Dosage: 30 MG, 1X/DAY
     Dates: start: 20211219
  17. VANCOMYCIN [Concomitant]
     Active Substance: VANCOMYCIN
     Indication: Febrile bone marrow aplasia
     Dosage: 38 MG, 1X/DAY
     Dates: start: 20211219
  18. NALBUPHINE [Concomitant]
     Active Substance: NALBUPHINE
     Indication: Pain
     Dosage: 15 MG, 1X/DAY
     Dates: start: 20211224, end: 20211225
  19. RIVOTRIL [Concomitant]
     Active Substance: CLONAZEPAM
     Indication: Pain
     Dosage: UNK UNK, 3X/DAY
     Dates: start: 20211226
  20. KIOVIG [Concomitant]
     Active Substance: HUMAN IMMUNOGLOBULIN G
     Indication: Hypogammaglobulinaemia
     Dosage: 10 G, 1X/DAY
     Dates: start: 20211215, end: 20211216
  21. ALBUMIN HUMAN [Concomitant]
     Active Substance: ALBUMIN HUMAN
     Indication: Hypoalbuminaemia
     Dosage: 10 G, 1X/DAY
     Dates: start: 20211225

REACTIONS (1)
  - Hypoxia [Recovered/Resolved]

NARRATIVE: CASE EVENT DATE: 20211227
